FAERS Safety Report 23669643 (Version 1)
Quarter: 2024Q1

REPORT INFORMATION
  Report Type: Report from Study
  Country: CN (occurrence: CN)
  Receive Date: 20240325
  Receipt Date: 20240325
  Transmission Date: 20240410
  Serious: Yes (Death)
  Sender: FDA-Public Use
  Company Number: CN-GUERBET / FUNDTRIP PHARMACEUTICALS-CN-20240080

PATIENT

DRUGS (1)
  1. IOVERSOL [Suspect]
     Active Substance: IOVERSOL
     Indication: Computerised tomogram
     Route: 042

REACTIONS (1)
  - Death [Fatal]
